FAERS Safety Report 5002293-9 (Version None)
Quarter: 2006Q2

REPORT INFORMATION
  Report Type: 
  Country: None (occurrence: None)
  Receive Date: 20060511
  Receipt Date: 20060511
  Transmission Date: 20061013
  Serious: No
  Sender: FDA-Public Use
  Company Number: None

PATIENT
  Age: 48 Year
  Sex: Male

DRUGS (1)
  1. DURAGESIC-100 [Suspect]
     Dosage: 1 PATCH Q 3 DAYS TOP
     Route: 061

REACTIONS (1)
  - PRURITUS [None]
